FAERS Safety Report 13994349 (Version 1)
Quarter: 2017Q3

REPORT INFORMATION
  Report Type: Spontaneous
  Country: US (occurrence: US)
  Receive Date: 20170920
  Receipt Date: 20170920
  Transmission Date: 20171128
  Serious: Yes (Hospitalization)
  Sender: FDA-Public Use
  Company Number: None

PATIENT
  Age: 77 Year
  Sex: Female
  Weight: 52 kg

DRUGS (5)
  1. ISONIAZID. [Concomitant]
     Active Substance: ISONIAZID
  2. PYRAZINAMIDE. [Concomitant]
     Active Substance: PYRAZINAMIDE
  3. ALLOPURINOL. [Suspect]
     Active Substance: ALLOPURINOL
     Indication: HYPERURICAEMIA
     Dates: start: 20170727, end: 20170906
  4. ETHAMBUTOL [Concomitant]
     Active Substance: ETHAMBUTOL HYDROCHLORIDE
  5. RIFAMPIN. [Concomitant]
     Active Substance: RIFAMPIN

REACTIONS (2)
  - Lip swelling [None]
  - Drug reaction with eosinophilia and systemic symptoms [None]

NARRATIVE: CASE EVENT DATE: 20170827
